FAERS Safety Report 20108147 (Version 1)
Quarter: 2021Q4

REPORT INFORMATION
  Report Type: Spontaneous
  Country: US (occurrence: US)
  Receive Date: 20211124
  Receipt Date: 20211124
  Transmission Date: 20220303
  Serious: No
  Sender: FDA-Public Use
  Company Number: US-KERYX BIOPHARMACEUTICALS INC.-2021US007697

PATIENT
  Sex: Female

DRUGS (11)
  1. AURYXIA [Suspect]
     Active Substance: TETRAFERRIC TRICITRATE DECAHYDRATE
     Indication: Product used for unknown indication
     Dosage: 1 GRAM (TABLET), TID
     Route: 048
  2. AURYXIA [Suspect]
     Active Substance: TETRAFERRIC TRICITRATE DECAHYDRATE
     Dosage: UNK
     Route: 048
  3. AMBIEN [Concomitant]
     Active Substance: ZOLPIDEM TARTRATE
     Dosage: UNK
     Route: 048
  4. CALCITRIOL [Concomitant]
     Active Substance: CALCITRIOL
     Dosage: UNK
     Route: 048
  5. NEPHRO-VITE                        /01801401/ [Concomitant]
     Dosage: UNK
     Route: 048
  6. PHOSLO [Concomitant]
     Active Substance: CALCIUM ACETATE
     Dosage: UNK
     Route: 048
  7. RENVELA [Concomitant]
     Active Substance: SEVELAMER CARBONATE
     Dosage: UNK
     Route: 048
  8. BACITRACIN [Concomitant]
     Active Substance: BACITRACIN
     Dosage: UNK
     Route: 065
  9. OYSTERCAL [Concomitant]
     Dosage: UNK
     Route: 048
  10. PROTONIX                           /00661201/ [Concomitant]
     Dosage: UNK
     Route: 048
  11. TUMS                               /00193601/ [Concomitant]
     Dosage: UNK
     Route: 048

REACTIONS (5)
  - Blood phosphorus increased [Unknown]
  - Blood calcium abnormal [Unknown]
  - Diarrhoea [Unknown]
  - Transferrin saturation increased [Unknown]
  - Serum ferritin increased [Unknown]
